FAERS Safety Report 11783109 (Version 2)
Quarter: 2018Q1

REPORT INFORMATION
  Report Type: Report from Study
  Country: None (occurrence: GB)
  Receive Date: 20151127
  Receipt Date: 20180308
  Transmission Date: 20180508
  Serious: Yes (Death)
  Sender: FDA-Public Use
  Company Number: GB-ABBVIE-15K-167-1508778-00

PATIENT
  Age: 66 Year
  Sex: Female

DRUGS (1)
  1. HUMIRA [Suspect]
     Active Substance: ADALIMUMAB
     Indication: RHEUMATOID ARTHRITIS
     Route: 058
     Dates: start: 20051107, end: 20070103

REACTIONS (4)
  - Multiple organ dysfunction syndrome [Fatal]
  - Deep vein thrombosis [Fatal]
  - Septic shock [Fatal]
  - Myasthenia gravis [Fatal]

NARRATIVE: CASE EVENT DATE: 20150422
